FAERS Safety Report 4902928-2 (Version None)
Quarter: 2006Q1

REPORT INFORMATION
  Report Type: 
  Country: None (occurrence: None)
  Receive Date: 20060207
  Receipt Date: 20060126
  Transmission Date: 20060701
  Serious: Yes (Hospitalization)
  Sender: FDA-Public Use
  Company Number: US-JNJFOC-20060105854

PATIENT
  Sex: Female

DRUGS (15)
  1. DURAGESIC-100 [Suspect]
     Route: 062
  2. LASIX [Concomitant]
     Route: 048
  3. LASIX [Concomitant]
     Route: 048
  4. TOPROL-XL [Concomitant]
     Indication: HYPERTENSION
     Route: 048
  5. SYNTHROID [Concomitant]
     Indication: THYROID DISORDER
     Route: 048
  6. NEXIUM [Concomitant]
     Indication: GASTROOESOPHAGEAL REFLUX DISEASE
     Route: 048
  7. LIPITOR [Concomitant]
     Route: 048
  8. ZETIA [Concomitant]
     Route: 048
  9. ELAVIL [Concomitant]
     Indication: MULTIPLE SCLEROSIS
     Route: 048
  10. FOSAMAX [Concomitant]
     Indication: OSTEOPOROSIS
     Dosage: 70 MG. 1 TABLET EVERY 7 DAYS
     Route: 048
  11. K-DUR 10 [Concomitant]
     Route: 048
  12. CITALOPRAM HYDROBROMIDE [Concomitant]
     Indication: DEPRESSION
     Route: 048
  13. COPAXONE [Concomitant]
     Indication: MULTIPLE SCLEROSIS
     Route: 058
  14. CYLERT [Concomitant]
     Indication: MULTIPLE SCLEROSIS
     Route: 048
  15. SPIRONOLACTONE [Concomitant]
     Indication: HYPERTENSION
     Route: 048

REACTIONS (2)
  - JOINT DISLOCATION [None]
  - VIRAL INFECTION [None]
